FAERS Safety Report 10977290 (Version 4)
Quarter: 2015Q3

REPORT INFORMATION
  Report Type: Report from Study
  Country: US (occurrence: US)
  Receive Date: 20150402
  Receipt Date: 20150713
  Transmission Date: 20151125
  Serious: Yes (Hospitalization)
  Sender: FDA-Public Use
  Company Number: US-BIOGENIDEC-2015BI038760

PATIENT
  Age: 38 Year
  Sex: Female

DRUGS (17)
  1. OMEPRAZOLE. [Concomitant]
     Active Substance: OMEPRAZOLE
  2. AMYTRIPTYLINE [Concomitant]
  3. SYNTHROID [Concomitant]
     Active Substance: LEVOTHYROXINE SODIUM
  4. TYSABRI [Suspect]
     Active Substance: NATALIZUMAB
     Indication: CROHN^S DISEASE
     Route: 042
     Dates: start: 20140401, end: 20150317
  5. VITAMIN B12 [Concomitant]
     Active Substance: CYANOCOBALAMIN
  6. ASPER FLEX CREAM [Concomitant]
  7. DOCUSATE [Concomitant]
     Active Substance: DOCUSATE
  8. ONDANSETRON [Concomitant]
     Active Substance: ONDANSETRON
  9. ALIGN PROBIOTIC [Concomitant]
  10. FLAXSEED [Concomitant]
     Active Substance: FLAX SEED
  11. LORAZEPAM. [Concomitant]
     Active Substance: LORAZEPAM
  12. PREDNISONE. [Concomitant]
     Active Substance: PREDNISONE
  13. ZOLPIDEM [Concomitant]
     Active Substance: ZOLPIDEM\ZOLPIDEM TARTRATE
  14. VITAMIN D3 [Concomitant]
     Active Substance: CHOLECALCIFEROL
  15. AMLODIPINE [Concomitant]
     Active Substance: AMLODIPINE BESYLATE
  16. SUMATRIPTAN. [Concomitant]
     Active Substance: SUMATRIPTAN
  17. CYCLOBENZAPRINE [Concomitant]
     Active Substance: CYCLOBENZAPRINE

REACTIONS (2)
  - Papillary thyroid cancer [Recovered/Resolved]
  - Haemolytic uraemic syndrome [Not Recovered/Not Resolved]

NARRATIVE: CASE EVENT DATE: 20150202
